FAERS Safety Report 19910073 (Version 2)
Quarter: 2021Q4

REPORT INFORMATION
  Report Type: Spontaneous
  Country: US (occurrence: US)
  Receive Date: 20211003
  Receipt Date: 20211122
  Transmission Date: 20220303
  Serious: No
  Sender: FDA-Public Use
  Company Number: US-AMGEN-USASP2021148022

PATIENT
  Age: 72 Year
  Sex: Female

DRUGS (1)
  1. REPATHA [Suspect]
     Active Substance: EVOLOCUMAB
     Indication: Blood cholesterol increased
     Dosage: 140 MILLIGRAM, Q2WK
     Route: 065
     Dates: start: 20210614, end: 2021

REACTIONS (14)
  - Incorrect disposal of product [Unknown]
  - Device use error [Unknown]
  - Pain in extremity [Recovering/Resolving]
  - Chest pain [Unknown]
  - Product dose omission issue [Unknown]
  - Injection site haemorrhage [Unknown]
  - Injection site bruising [Recovering/Resolving]
  - Arthralgia [Unknown]
  - Muscle spasms [Recovering/Resolving]
  - Injection site reaction [Unknown]
  - Headache [Unknown]
  - Rhinorrhoea [Unknown]
  - Blood glucose increased [Unknown]
  - Asthenia [Unknown]

NARRATIVE: CASE EVENT DATE: 20210101
